FAERS Safety Report 25574407 (Version 3)
Quarter: 2025Q4

REPORT INFORMATION
  Report Type: Report from Study
  Country: EU (occurrence: EU)
  Receive Date: 20250717
  Receipt Date: 20251026
  Transmission Date: 20260118
  Serious: Yes (Other)
  Sender: JOHNSON AND JOHNSON
  Company Number: EU-JNJFOC-20250715026

PATIENT
  Age: 67 Year
  Sex: Male

DRUGS (18)
  1. CILTACABTAGENE AUTOLEUCEL [Suspect]
     Active Substance: CILTACABTAGENE AUTOLEUCEL
     Indication: Plasma cell myeloma
     Dosage: 0.7 X10^6 CARPOSITIVE VIABLE T CELLS/KG; 70 ML
     Route: 042
     Dates: start: 20241021, end: 20241021
  2. MEPERIDINE [Concomitant]
     Active Substance: MEPERIDINE
     Indication: Plasma cell myeloma
     Dosage: FREQUENCY-OTHER
     Route: 042
     Dates: start: 20241021, end: 20241104
  3. MEPERIDINE [Concomitant]
     Active Substance: MEPERIDINE
     Indication: Pain
  4. FILGRASTIM [Concomitant]
     Active Substance: FILGRASTIM
     Indication: Prophylaxis
     Dosage: FREQUENCY - ONCE
     Route: 058
     Dates: start: 20241104, end: 20241104
  5. CIPROFLOXACIN [Concomitant]
     Active Substance: CIPROFLOXACIN
     Indication: Salmonellosis
     Route: 048
     Dates: start: 202412, end: 202412
  6. CIPROFLOXACIN [Concomitant]
     Active Substance: CIPROFLOXACIN
     Route: 048
     Dates: start: 202412, end: 202412
  7. DENOSUMAB [Concomitant]
     Active Substance: DENOSUMAB
     Indication: Plasma cell myeloma
     Route: 058
     Dates: start: 2024
  8. AMPICILLIN [Concomitant]
     Active Substance: AMPICILLIN
     Indication: Salmonellosis
     Dosage: FREQUENCY-ONCE
     Route: 042
     Dates: start: 202412, end: 202412
  9. SULBACTAME [Concomitant]
     Indication: Salmonellosis
     Dosage: FREQUENCY-ONCE
     Route: 042
     Dates: start: 202412, end: 202412
  10. CALCIUM CARBONATE [Concomitant]
     Active Substance: CALCIUM CARBONATE
     Indication: Product used for unknown indication
  11. PANTOPRAZOLE [Concomitant]
     Active Substance: PANTOPRAZOLE
     Indication: Product used for unknown indication
  12. ACYCLOVIR [Concomitant]
     Active Substance: ACYCLOVIR
     Indication: Product used for unknown indication
  13. XARELTO [Concomitant]
     Active Substance: RIVAROXABAN
     Indication: Product used for unknown indication
  14. DAPSONE [Concomitant]
     Active Substance: DAPSONE
     Indication: Product used for unknown indication
  15. DARAPRIM [Concomitant]
     Active Substance: PYRIMETHAMINE
     Indication: Product used for unknown indication
  16. SOOLANTRA [Concomitant]
     Active Substance: IVERMECTIN
     Indication: Product used for unknown indication
  17. METROGEL [Concomitant]
     Active Substance: METRONIDAZOLE
     Indication: Product used for unknown indication
  18. POTASSIUM CHLORIDE [Concomitant]
     Active Substance: POTASSIUM CHLORIDE
     Indication: Product used for unknown indication

REACTIONS (1)
  - Basal cell carcinoma [Recovered/Resolved]

NARRATIVE: CASE EVENT DATE: 20250304
